FAERS Safety Report 9729613 (Version 1)
Quarter: 2013Q4

REPORT INFORMATION
  Report Type: Spontaneous
  Country: US (occurrence: US)
  Receive Date: 20131204
  Receipt Date: 20131204
  Transmission Date: 20140711
  Serious: No
  Sender: FDA-Public Use
  Company Number: US-PURDUE-USA-2013-0107221

PATIENT
  Sex: Male

DRUGS (1)
  1. INTERMEZZO [Suspect]
     Indication: MIDDLE INSOMNIA
     Route: 060

REACTIONS (2)
  - Inappropriate schedule of drug administration [Unknown]
  - Product packaging issue [Unknown]
